FAERS Safety Report 25912890 (Version 1)
Quarter: 2025Q4

REPORT INFORMATION
  Report Type: Spontaneous
  Country: EU (occurrence: EU)
  Receive Date: 20251013
  Receipt Date: 20251013
  Transmission Date: 20260118
  Serious: Yes (Other)
  Sender: CHEPLAPHARM
  Company Number: None

PATIENT
  Sex: Male

DRUGS (2)
  1. QUETIAPINE [Suspect]
     Active Substance: QUETIAPINE
     Indication: Suicidal ideation
     Dosage: DAILY DOSE: 6000 MILLIGRAM
     Route: 048
     Dates: start: 20250731, end: 20250731
  2. PREGABALIN [Suspect]
     Active Substance: PREGABALIN
     Indication: Suicidal ideation
     Dosage: 1 DF= 1 TABLET?DAILY DOSE: 20 DOSAGE FORM
     Route: 048
     Dates: start: 20250731, end: 20250731

REACTIONS (4)
  - Suicide attempt [Unknown]
  - Intentional overdose [Unknown]
  - Bradycardia [Unknown]
  - Oxygen saturation decreased [Unknown]

NARRATIVE: CASE EVENT DATE: 20250731
